FAERS Safety Report 6233580-4 (Version None)
Quarter: 2009Q2

REPORT INFORMATION
  Report Type: 
  Country: None (occurrence: None)
  Receive Date: 20090617
  Receipt Date: 20090611
  Transmission Date: 20091009
  Serious: Yes (Hospitalization)
  Sender: FDA-Public Use
  Company Number: US-GILEAD-2009-0022552

PATIENT
  Sex: Male
  Weight: 136.2 kg

DRUGS (17)
  1. LETAIRIS [Suspect]
     Indication: PULMONARY ARTERIAL HYPERTENSION
     Route: 048
     Dates: start: 20081110
  2. VIAGRA [Concomitant]
  3. LISINOPRIL [Concomitant]
  4. MAXZIDE [Concomitant]
  5. HUMALOG [Concomitant]
  6. SPIRIVA [Concomitant]
  7. SYMBICORT [Concomitant]
  8. LANTUS [Concomitant]
  9. AMARYL [Concomitant]
  10. GLUCOPHAGE [Concomitant]
  11. SYMLIN [Concomitant]
  12. FLOMAX [Concomitant]
  13. ALLEGRA [Concomitant]
  14. VYTORIN [Concomitant]
  15. ASPIRIN [Concomitant]
  16. ADVIL [Concomitant]
  17. C-TESTOSTERONE [Concomitant]

REACTIONS (2)
  - CARDIAC FAILURE CONGESTIVE [None]
  - DYSPNOEA [None]
